FAERS Safety Report 26055225 (Version 1)
Quarter: 2025Q4

REPORT INFORMATION
  Report Type: Spontaneous
  Country: MY (occurrence: MY)
  Receive Date: 20251117
  Receipt Date: 20251117
  Transmission Date: 20260118
  Serious: Yes (Life-Threatening, Hospitalization, Other)
  Sender: PFIZER
  Company Number: MY-PFIZER INC-202500224122

PATIENT
  Age: 45 Year
  Sex: Male

DRUGS (1)
  1. MEROPENEM [Suspect]
     Active Substance: MEROPENEM
     Indication: Endocarditis pseudomonal
     Dosage: UNK
     Route: 042

REACTIONS (1)
  - Drug ineffective [Unknown]
